FAERS Safety Report 7282184-3 (Version None)
Quarter: 2011Q1

REPORT INFORMATION
  Report Type: 
  Country: None (occurrence: None)
  Receive Date: 20110209
  Receipt Date: 20110127
  Transmission Date: 20110831
  Serious: Yes (Other)
  Sender: FDA-Public Use
  Company Number: CH-BIOGENIDEC-2010BI043060

PATIENT
  Age: 47 Year
  Sex: Male

DRUGS (1)
  1. TYSABRI [Suspect]
     Indication: RELAPSING-REMITTING MULTIPLE SCLEROSIS
     Dates: start: 20061101, end: 20101025

REACTIONS (4)
  - VISUAL FIELD DEFECT [None]
  - MENTAL DISORDER [None]
  - VISUAL ACUITY REDUCED [None]
  - DEPRESSION [None]
